FAERS Safety Report 5414781-1 (Version None)
Quarter: 2007Q3

REPORT INFORMATION
  Report Type: 
  Country: None (occurrence: None)
  Receive Date: 20070713
  Receipt Date: 20070503
  Transmission Date: 20080115
  Serious: Yes (Hospitalization)
  Sender: FDA-Public Use
  Company Number: US-JNJFOC-20060903680

PATIENT
  Age: 34 Year
  Sex: Female
  Weight: 80.5135 kg

DRUGS (8)
  1. ORTHO EVRA [Suspect]
     Indication: DRUG USE FOR UNKNOWN INDICATION
  2. PREVACID [Concomitant]
  3. ZOLOFT [Concomitant]
  4. FOLIC ACID [Concomitant]
  5. PREDNISONE TAB [Concomitant]
  6. LEVAQUIN [Concomitant]
  7. ALBUTEROL [Concomitant]
  8. ATROVENT [Concomitant]

REACTIONS (1)
  - DEEP VEIN THROMBOSIS [None]
